FAERS Safety Report 20913433 (Version 1)
Quarter: 2022Q2

REPORT INFORMATION
  Report Type: Spontaneous
  Country: US (occurrence: US)
  Receive Date: 20220603
  Receipt Date: 20220603
  Transmission Date: 20220721
  Serious: No
  Sender: FDA-Public Use
  Company Number: US-ORGANON-O2206USA000163

PATIENT
  Age: 78 Year
  Sex: Female

DRUGS (25)
  1. REMERON [Suspect]
     Active Substance: MIRTAZAPINE
     Indication: Cognitive disorder
     Dosage: UNK
     Route: 048
  2. REMERON [Suspect]
     Active Substance: MIRTAZAPINE
     Indication: Affective disorder
  3. DULOXETINE [Suspect]
     Active Substance: DULOXETINE
     Indication: Cognitive disorder
     Dosage: UNK
  4. DULOXETINE [Suspect]
     Active Substance: DULOXETINE
     Indication: Affective disorder
  5. ESCITALOPRAM [Suspect]
     Active Substance: ESCITALOPRAM OXALATE
     Indication: Cognitive disorder
     Dosage: UNK
  6. ESCITALOPRAM [Suspect]
     Active Substance: ESCITALOPRAM OXALATE
     Indication: Affective disorder
  7. ESCITALOPRAM [Suspect]
     Active Substance: ESCITALOPRAM OXALATE
     Indication: Psychotic symptom
  8. SERTRALINE [Suspect]
     Active Substance: SERTRALINE HYDROCHLORIDE
     Indication: Cognitive disorder
     Dosage: UNK
  9. SERTRALINE [Suspect]
     Active Substance: SERTRALINE HYDROCHLORIDE
     Indication: Affective disorder
  10. SERTRALINE [Suspect]
     Active Substance: SERTRALINE HYDROCHLORIDE
     Indication: Psychotic symptom
  11. VENLAFAXINE [Suspect]
     Active Substance: VENLAFAXINE HYDROCHLORIDE
     Indication: Cognitive disorder
     Dosage: UNK
  12. VENLAFAXINE [Suspect]
     Active Substance: VENLAFAXINE HYDROCHLORIDE
     Indication: Affective disorder
  13. VENLAFAXINE [Suspect]
     Active Substance: VENLAFAXINE HYDROCHLORIDE
     Indication: Psychotic symptom
  14. CLONAZEPAM [Suspect]
     Active Substance: CLONAZEPAM
     Indication: Cognitive disorder
     Dosage: UNK
  15. CLONAZEPAM [Suspect]
     Active Substance: CLONAZEPAM
     Indication: Affective disorder
  16. CLONAZEPAM [Suspect]
     Active Substance: CLONAZEPAM
     Indication: Psychotic symptom
  17. DONEPEZIL [Suspect]
     Active Substance: DONEPEZIL
     Indication: Cognitive disorder
     Dosage: UNK
  18. DONEPEZIL [Suspect]
     Active Substance: DONEPEZIL
     Indication: Affective disorder
  19. DONEPEZIL [Suspect]
     Active Substance: DONEPEZIL
     Indication: Psychotic symptom
  20. MEMANTINE [Suspect]
     Active Substance: MEMANTINE
     Indication: Cognitive disorder
     Dosage: UNK
  21. MEMANTINE [Suspect]
     Active Substance: MEMANTINE
     Indication: Affective disorder
  22. MEMANTINE [Suspect]
     Active Substance: MEMANTINE
     Indication: Psychotic symptom
  23. RIVASTIGMINE [Suspect]
     Active Substance: RIVASTIGMINE
     Indication: Cognitive disorder
     Dosage: UNK
  24. RIVASTIGMINE [Suspect]
     Active Substance: RIVASTIGMINE
     Indication: Affective disorder
  25. RIVASTIGMINE [Suspect]
     Active Substance: RIVASTIGMINE
     Indication: Psychotic symptom

REACTIONS (1)
  - Drug ineffective [Unknown]
